FAERS Safety Report 15213619 (Version 3)
Quarter: 2022Q2

REPORT INFORMATION
  Report Type: Report from Study
  Country: US (occurrence: US)
  Receive Date: 20180730
  Receipt Date: 20220506
  Transmission Date: 20220720
  Serious: No
  Sender: FDA-Public Use
  Company Number: PHEH2018US030956

PATIENT
  Sex: Female

DRUGS (1)
  1. AFINITOR [Suspect]
     Active Substance: EVEROLIMUS
     Indication: Angiomyolipoma
     Dosage: 5 MG, QD
     Route: 048
     Dates: start: 20180630

REACTIONS (5)
  - Abdominal discomfort [Unknown]
  - Back pain [Unknown]
  - Headache [Recovered/Resolved]
  - Vitamin D decreased [Unknown]
  - Blood pressure increased [Unknown]
